FAERS Safety Report 8108112-6 (Version None)
Quarter: 2012Q1

REPORT INFORMATION
  Report Type: 
  Country: None (occurrence: None)
  Receive Date: 20120202
  Receipt Date: 20120127
  Transmission Date: 20120608
  Serious: Yes (Hospitalization)
  Sender: FDA-Public Use
  Company Number: TR-BRACCO-000036

PATIENT
  Age: 55 Year
  Sex: Female

DRUGS (4)
  1. RAMIPRIL [Concomitant]
  2. IOPAMIDOL [Suspect]
     Indication: ANGINA PECTORIS
  3. IOPAMIDOL [Suspect]
     Indication: ARTERIOGRAM CORONARY
  4. ACETYLSALICYLIC ACID SRT [Concomitant]

REACTIONS (1)
  - PAROTID GLAND ENLARGEMENT [None]
